FAERS Safety Report 8610786-8 (Version None)
Quarter: 2012Q3

REPORT INFORMATION
  Report Type: 
  Country: None (occurrence: None)
  Receive Date: 20120822
  Receipt Date: 20120809
  Transmission Date: 20120928
  Serious: Yes (Hospitalization)
  Sender: FDA-Public Use
  Company Number: US-ELI_LILLY_AND_COMPANY-US201111003722

PATIENT
  Sex: Female

DRUGS (2)
  1. FORTEO [Suspect]
     Indication: OSTEOPOROSIS
     Dosage: UNK, UNKNOWN
     Dates: start: 20111101
  2. FORTEO [Suspect]
     Dosage: 20 UG, QD
     Dates: start: 20111101

REACTIONS (7)
  - THERAPY CESSATION [None]
  - NAUSEA [None]
  - DISCOMFORT [None]
  - ABDOMINAL DISTENSION [None]
  - PAIN IN EXTREMITY [None]
  - HEADACHE [None]
  - DYSPNOEA [None]
